FAERS Safety Report 18311529 (Version 1)
Quarter: 2020Q3

REPORT INFORMATION
  Report Type: Spontaneous
  Country: US (occurrence: US)
  Receive Date: 20200924
  Receipt Date: 20200924
  Transmission Date: 20201103
  Serious: No
  Sender: FDA-Public Use
  Company Number: None

PATIENT
  Sex: Female

DRUGS (1)
  1. METRONIDAZOLE 5MG [Suspect]
     Active Substance: METRONIDAZOLE

REACTIONS (4)
  - Drug intolerance [None]
  - Constipation [None]
  - Nausea [None]
  - Decreased appetite [None]
